FAERS Safety Report 4853898-7 (Version None)
Quarter: 2005Q4

REPORT INFORMATION
  Report Type: 
  Country: None (occurrence: None)
  Receive Date: 20051213
  Receipt Date: 20051130
  Transmission Date: 20060501
  Serious: Yes (Hospitalization, Other)
  Sender: FDA-Public Use
  Company Number: 2005-12-0101

PATIENT
  Sex: Male

DRUGS (3)
  1. CLARITIN-D [Suspect]
     Dosage: ORAL
     Route: 048
  2. ZETIA [Suspect]
  3. ANGIOTENSIN CONVERTING ENZYME INHIBITOR (NOS) TABLETS [Suspect]

REACTIONS (1)
  - ANGIONEUROTIC OEDEMA [None]
